FAERS Safety Report 6233427-6 (Version None)
Quarter: 2009Q2

REPORT INFORMATION
  Report Type: 
  Country: None (occurrence: None)
  Receive Date: 20090616
  Receipt Date: 20090616
  Transmission Date: 20091009
  Serious: Yes (Other)
  Sender: FDA-Public Use
  Company Number: None

PATIENT
  Age: 32 Year
  Sex: Female
  Weight: 83.0083 kg

DRUGS (1)
  1. PAROMOMYCIN 250 MG [Suspect]
     Indication: GIARDIASIS
     Dosage: TWO CAPSULES FOUR TIMES A DAY PO
     Route: 048
     Dates: start: 20081106, end: 20081113

REACTIONS (3)
  - ABORTION SPONTANEOUS [None]
  - DRUG EXPOSURE DURING PREGNANCY [None]
  - MATERNAL DRUGS AFFECTING FOETUS [None]
